FAERS Safety Report 13481863 (Version 2)
Quarter: 2017Q2

REPORT INFORMATION
  Report Type: Spontaneous
  Country: US (occurrence: US)
  Receive Date: 20170424
  Receipt Date: 20170531
  Transmission Date: 20170830
  Serious: No
  Sender: FDA-Public Use
  Company Number: US-JNJFOC-20170414260

PATIENT
  Age: 82 Year
  Sex: Female
  Weight: 63.5 kg

DRUGS (1)
  1. TYLENOL EXTRA STRENGTH [Suspect]
     Active Substance: ACETAMINOPHEN
     Indication: BACK PAIN
     Dosage: DAILY
     Route: 048
     Dates: end: 20170410

REACTIONS (6)
  - Incorrect dose administered [Recovering/Resolving]
  - Product lot number issue [Unknown]
  - Inappropriate schedule of drug administration [Recovering/Resolving]
  - Drug administration error [Recovering/Resolving]
  - Tinnitus [Recovering/Resolving]
  - Product expiration date issue [Unknown]

NARRATIVE: CASE EVENT DATE: 20170411
